FAERS Safety Report 8919980 (Version 1)
Quarter: 2012Q4

REPORT INFORMATION
  Report Type: 
  Country: CA (occurrence: CA)
  Receive Date: 20121121
  Receipt Date: 20121121
  Transmission Date: 20130627
  Serious: Yes (Other)
  Sender: FDA-Public Use
  Company Number: CA-GE HEALTHCARE MEDICAL DIAGNOSTICS-VISP-PR-1211S-0527

PATIENT
  Age: 41 Year
  Sex: Female
  Weight: 64.92 kg

DRUGS (2)
  1. VISIPAQUE [Suspect]
     Indication: CYST
     Route: 042
     Dates: start: 20121115, end: 20121115
  2. VISIPAQUE [Suspect]
     Indication: DIAGNOSTIC PROCEDURE

REACTIONS (4)
  - Urticaria [Recovered/Resolved]
  - Tongue disorder [Recovered/Resolved]
  - Swelling face [Recovered/Resolved]
  - Local swelling [Recovered/Resolved]
